FAERS Safety Report 6618844-4 (Version None)
Quarter: 2010Q1

REPORT INFORMATION
  Report Type: 
  Country: None (occurrence: None)
  Receive Date: 20100305
  Receipt Date: 20100305
  Transmission Date: 20100710
  Serious: Yes (Life-Threatening, Other)
  Sender: FDA-Public Use
  Company Number: None

PATIENT
  Age: 53 Year
  Sex: Female
  Weight: 85.7298 kg

DRUGS (17)
  1. ENBREL [Suspect]
     Indication: RHEUMATOID ARTHRITIS
     Dosage: 50MG ONCE WEEKLY SQ
     Route: 058
     Dates: start: 20010102, end: 20091030
  2. PLAQUENIL [Concomitant]
  3. NEXIUM [Concomitant]
  4. PROVENTIL [Concomitant]
  5. ENALAPRIL MALEATE [Concomitant]
  6. RESTASIS [Concomitant]
  7. SYMBICORT [Concomitant]
  8. CARDIZEM [Concomitant]
  9. LOZOL [Concomitant]
  10. METFORMIN HYDROCHLORIDE [Concomitant]
  11. SIMVASTATIN [Concomitant]
  12. CLIMARA [Concomitant]
  13. GLYCOLAX [Concomitant]
  14. VENLFAXINE XR [Concomitant]
  15. KLONOPIN [Concomitant]
  16. AMBIEN [Concomitant]
  17. OXYCONTIN [Concomitant]

REACTIONS (1)
  - NON-HODGKIN'S LYMPHOMA [None]
